FAERS Safety Report 7508004-7 (Version None)
Quarter: 2011Q2

REPORT INFORMATION
  Report Type: 
  Country: None (occurrence: None)
  Receive Date: 20110527
  Receipt Date: 20110411
  Transmission Date: 20111010
  Serious: No
  Sender: FDA-Public Use
  Company Number: US-MYLANLABS-2011S1007604

PATIENT
  Age: 43 Year
  Sex: Male
  Weight: 63.5 kg

DRUGS (6)
  1. LEVETIRACETAM [Suspect]
     Route: 048
     Dates: start: 20110410
  2. OXAZEPAM [Concomitant]
     Indication: ANXIETY
     Route: 048
     Dates: start: 20070101
  3. KEPPRA [Suspect]
     Route: 048
     Dates: end: 20110402
  4. LEVETIRACETAM [Suspect]
     Indication: GRAND MAL CONVULSION
     Route: 048
     Dates: start: 20110403, end: 20110409
  5. KEPPRA [Suspect]
     Indication: GRAND MAL CONVULSION
     Route: 048
     Dates: end: 20110402
  6. CARBATROL [Concomitant]
     Indication: CONVULSION
     Route: 048
     Dates: start: 20060101

REACTIONS (6)
  - FATIGUE [None]
  - MOOD SWINGS [None]
  - NAUSEA [None]
  - COORDINATION ABNORMAL [None]
  - DIZZINESS [None]
  - INTENTIONAL DRUG MISUSE [None]
